FAERS Safety Report 24111149 (Version 1)
Quarter: 2024Q3

REPORT INFORMATION
  Report Type: Spontaneous
  Country: IE (occurrence: IE)
  Receive Date: 20240718
  Receipt Date: 20240718
  Transmission Date: 20241017
  Serious: Yes (Life-Threatening, Hospitalization, Other)
  Sender: GLAXOSMITHKLINE
  Company Number: None

PATIENT

DRUGS (2)
  1. LAMICTAL [Suspect]
     Active Substance: LAMOTRIGINE
     Indication: Epilepsy
     Dosage: 200 MG, QD
     Route: 048
     Dates: start: 20240605, end: 20240626
  2. ZONISAMIDE [Suspect]
     Active Substance: ZONISAMIDE
     Indication: Epilepsy
     Dosage: 100 MG, QD (2X 100 MG IN AM AND 3X 100MG AT PM)
     Route: 048
     Dates: start: 20240605, end: 20240626

REACTIONS (21)
  - Mental disorder [Unknown]
  - Product prescribing error [Unknown]
  - Change in seizure presentation [Unknown]
  - Drug ineffective [Unknown]
  - Product substitution issue [Unknown]
  - Near drowning [Unknown]
  - Coordination abnormal [Unknown]
  - Alopecia [Unknown]
  - Somnolence [Unknown]
  - Fatigue [Unknown]
  - Confusional state [Unknown]
  - Hyperhidrosis [Unknown]
  - Contusion [Unknown]
  - Dry mouth [Unknown]
  - Memory impairment [Unknown]
  - Nausea [Unknown]
  - Gait disturbance [Unknown]
  - Peripheral swelling [Unknown]
  - Paraesthesia [Unknown]
  - Headache [Unknown]
  - Dizziness [Unknown]

NARRATIVE: CASE EVENT DATE: 20240605
